FAERS Safety Report 12225790 (Version 2)
Quarter: 2016Q2

REPORT INFORMATION
  Report Type: Spontaneous
  Country: US (occurrence: US)
  Receive Date: 20160331
  Receipt Date: 20160516
  Transmission Date: 20160815
  Serious: No
  Sender: FDA-Public Use
  Company Number: US-PFIZER INC-2016146199

PATIENT
  Sex: Female

DRUGS (1)
  1. LYRICA [Suspect]
     Active Substance: PREGABALIN
     Indication: NERVE INJURY
     Dosage: 50 MG, 1X/DAY
     Dates: start: 20160122

REACTIONS (4)
  - Vision blurred [Unknown]
  - Poor quality sleep [Unknown]
  - Hallucination, visual [Unknown]
  - Abdominal pain upper [Unknown]
